FAERS Safety Report 14334047 (Version 1)
Quarter: 2017Q4

REPORT INFORMATION
  Report Type: Spontaneous
  Country: JP (occurrence: JP)
  Receive Date: 20171228
  Receipt Date: 20171228
  Transmission Date: 20180321
  Serious: Yes (Death)
  Sender: FDA-Public Use
  Company Number: JP-MITSUBISHI TANABE PHARMA CORPORATION-MTPC2017-0027344

PATIENT
  Age: 8 Decade
  Sex: Female

DRUGS (1)
  1. RADICUT [Suspect]
     Active Substance: EDARAVONE
     Route: 041
     Dates: start: 20171218

REACTIONS (1)
  - Marasmus [Fatal]

NARRATIVE: CASE EVENT DATE: 20171219
